FAERS Safety Report 5694072-4 (Version None)
Quarter: 2008Q1

REPORT INFORMATION
  Report Type: 
  Country: None (occurrence: None)
  Receive Date: 20080319
  Receipt Date: 20080313
  Transmission Date: 20080703
  Serious: Yes (Hospitalization)
  Sender: FDA-Public Use
  Company Number: 200812941

PATIENT
  Age: 63 Year
  Sex: Female
  Weight: 68.2 kg

DRUGS (5)
  1. VIVAGLOBIN [Suspect]
     Indication: PRIMARY IMMUNODEFICIENCY SYNDROME
     Dosage: 64.2 ML Q1W SC, 64.2 ML Q1W SC
     Route: 058
     Dates: start: 20071011
  2. VIVAGLOBIN [Suspect]
     Indication: PRIMARY IMMUNODEFICIENCY SYNDROME
     Dosage: 64.2 ML Q1W SC, 64.2 ML Q1W SC
     Route: 058
     Dates: start: 20080215
  3. HYDROCHLOROTHIAZIDE [Concomitant]
  4. LOTREL [Concomitant]
  5. ZOCOR [Concomitant]

REACTIONS (12)
  - CAROTID ARTERY OCCLUSION [None]
  - CAROTID ARTERY STENOSIS [None]
  - CEREBRAL ISCHAEMIA [None]
  - CHEST DISCOMFORT [None]
  - DIZZINESS [None]
  - DYSPNOEA [None]
  - FIBRIN D DIMER INCREASED [None]
  - LOW DENSITY LIPOPROTEIN INCREASED [None]
  - LUNG NEOPLASM [None]
  - MITRAL VALVE INCOMPETENCE [None]
  - PRESYNCOPE [None]
  - TRICUSPID VALVE INCOMPETENCE [None]
